FAERS Safety Report 16850055 (Version 1)
Quarter: 2019Q3

REPORT INFORMATION
  Report Type: Spontaneous
  Country: US (occurrence: US)
  Receive Date: 20190925
  Receipt Date: 20190925
  Transmission Date: 20191005
  Serious: Yes (Life-Threatening, Hospitalization)
  Sender: FDA-Public Use
  Company Number: US-SCIEGEN PHARMACEUTICALS INC-2019SCILIT00263

PATIENT
  Age: 22 Year
  Sex: Female

DRUGS (11)
  1. LORAZEPAM. [Interacting]
     Active Substance: LORAZEPAM
  2. MAGNESIUM [Interacting]
     Active Substance: MAGNESIUM
  3. DOPAMINE [Interacting]
     Active Substance: DOPAMINE HYDROCHLORIDE
  4. PHENYLEPHRINE [Interacting]
     Active Substance: PHENYLEPHRINE HYDROCHLORIDE
  5. METHYLENE BLUE. [Interacting]
     Active Substance: METHYLENE BLUE
  6. LIDOCAINE. [Interacting]
     Active Substance: LIDOCAINE
  7. AMIODARONE [Interacting]
     Active Substance: AMIODARONE
  8. BUPROPION HYDROCHLORIDE. [Suspect]
     Active Substance: BUPROPION HYDROCHLORIDE
  9. NOREPINEPHRINE. [Interacting]
     Active Substance: NOREPINEPHRINE
  10. EPINEPHRINE. [Interacting]
     Active Substance: EPINEPHRINE
  11. SODIUM BICARBONATE. [Interacting]
     Active Substance: SODIUM BICARBONATE

REACTIONS (5)
  - Circulatory collapse [Recovered/Resolved]
  - Intentional overdose [Recovered/Resolved]
  - Torsade de pointes [Recovered/Resolved]
  - Toxicity to various agents [Recovered/Resolved]
  - Seizure [Recovered/Resolved]
